FAERS Safety Report 17533652 (Version 2)
Quarter: 2020Q1

REPORT INFORMATION
  Report Type: Spontaneous
  Country: CA (occurrence: CA)
  Receive Date: 20200312
  Receipt Date: 20200318
  Transmission Date: 20200409
  Serious: Yes (Other)
  Sender: FDA-Public Use
  Company Number: CA-PFIZER INC-2020106282

PATIENT
  Age: 66 Year
  Sex: Male

DRUGS (3)
  1. CELEBREX [Suspect]
     Active Substance: CELECOXIB
     Indication: HIP SURGERY
     Dosage: UNK
     Route: 065
  2. SALOFALK [MESALAZINE] [Concomitant]
     Active Substance: MESALAMINE
     Dosage: UNK, DAILY (QHS)
     Route: 065
  3. MEZAVANT [Concomitant]
     Active Substance: MESALAMINE
     Dosage: UNK UNK, 1X/DAY (OD)
     Route: 065

REACTIONS (3)
  - Drug hypersensitivity [Unknown]
  - Urticaria [Unknown]
  - Colitis ulcerative [Not Recovered/Not Resolved]
